FAERS Safety Report 5840810-7 (Version None)
Quarter: 2008Q3

REPORT INFORMATION
  Report Type: 
  Country: None (occurrence: None)
  Receive Date: 20080730
  Receipt Date: 20080609
  Transmission Date: 20090109
  Serious: Yes (Life-Threatening, Hospitalization)
  Sender: FDA-Public Use
  Company Number: PHEH2008US05015

PATIENT
  Age: 69 Year
  Sex: Male
  Weight: 52.6 kg

DRUGS (4)
  1. TEKTURNA [Suspect]
     Indication: CARDIAC FAILURE
  2. LISINOPRIL [Suspect]
     Indication: HYPERTENSION
  3. SPIRONOLACTONE [Concomitant]
  4. BUMEX [Concomitant]

REACTIONS (8)
  - BLOOD CREATININE INCREASED [None]
  - BLOOD POTASSIUM INCREASED [None]
  - DROOLING [None]
  - DYSARTHRIA [None]
  - DYSPNOEA [None]
  - ENDOTRACHEAL INTUBATION [None]
  - MECHANICAL VENTILATION [None]
  - SWOLLEN TONGUE [None]
